FAERS Safety Report 7596618-8 (Version None)
Quarter: 2011Q3

REPORT INFORMATION
  Report Type: 
  Country: None (occurrence: None)
  Receive Date: 20110708
  Receipt Date: 20110627
  Transmission Date: 20111222
  Serious: Yes (Hospitalization)
  Sender: FDA-Public Use
  Company Number: CA-ELI_LILLY_AND_COMPANY-CA201106008420

PATIENT
  Age: 75 Year
  Sex: Female

DRUGS (10)
  1. SYNTHROID [Concomitant]
  2. MIRAPEX [Concomitant]
  3. VITAMIN D [Concomitant]
  4. FORTEO [Suspect]
     Indication: OSTEOPOROSIS
     Dosage: 20 UG, QD
     Route: 058
     Dates: start: 20110416
  5. PANTOLOC                           /01263202/ [Concomitant]
  6. CELEBREX [Concomitant]
  7. DOCUSATE [Concomitant]
  8. SUPRADOL [Concomitant]
  9. LYRICA [Concomitant]
  10. FENTANYL [Concomitant]

REACTIONS (1)
  - FALL [None]
